FAERS Safety Report 24142938 (Version 2)
Quarter: 2024Q3

REPORT INFORMATION
  Report Type: Report from Study
  Country: US (occurrence: US)
  Receive Date: 20240726
  Receipt Date: 20240801
  Transmission Date: 20241017
  Serious: Yes (Death, Hospitalization)
  Sender: ABBVIE
  Company Number: US-ABBVIE-5853226

PATIENT
  Age: 78 Year
  Sex: Male

DRUGS (1)
  1. VENCLEXTA [Suspect]
     Active Substance: VENETOCLAX
     Indication: Acute myeloid leukaemia
     Route: 048

REACTIONS (6)
  - Death [Fatal]
  - Movement disorder [Unknown]
  - Arthralgia [Not Recovered/Not Resolved]
  - Pain in extremity [Not Recovered/Not Resolved]
  - Pain in extremity [Unknown]
  - Gait inability [Unknown]

NARRATIVE: CASE EVENT DATE: 20240701
